FAERS Safety Report 16755323 (Version 1)
Quarter: 2019Q3

REPORT INFORMATION
  Report Type: Spontaneous
  Country: CA (occurrence: CA)
  Receive Date: 20190829
  Receipt Date: 20190829
  Transmission Date: 20191005
  Serious: Yes (Other)
  Sender: FDA-Public Use
  Company Number: CA-MERZ NORTH AMERICA, INC.-19MRZ-00343

PATIENT
  Sex: Male

DRUGS (1)
  1. XEOMIN [Suspect]
     Active Substance: INCOBOTULINUMTOXINA
     Indication: MIGRAINE
     Dosage: UNKNOWN
     Route: 030

REACTIONS (2)
  - Off label use [Unknown]
  - Seizure [Recovered/Resolved]
